FAERS Safety Report 6233419-7 (Version None)
Quarter: 2009Q2

REPORT INFORMATION
  Report Type: 
  Country: None (occurrence: None)
  Receive Date: 20090617
  Receipt Date: 20090428
  Transmission Date: 20091009
  Serious: No
  Sender: FDA-Public Use
  Company Number: US-TYCO HEALTHCARE/MALLINCKRODT-T200900971

PATIENT
  Sex: Male

DRUGS (18)
  1. ULTRATAG [Suspect]
     Indication: MULTIPLE GATED ACQUISITION SCAN
     Dosage: UNK, SINGLE
     Route: 042
     Dates: start: 20090428, end: 20090428
  2. ULTRA-TECHNEKOW [Suspect]
     Indication: MULTIPLE GATED ACQUISITION SCAN
     Dosage: 31 MCI, SINGLE
     Route: 042
     Dates: start: 20090428, end: 20090428
  3. ADVAIR HFA [Concomitant]
     Dosage: 2 PUFFS, BID
  4. THEOPHYLLAMINE [Concomitant]
     Dosage: 300 MG, QD
  5. PROVENTIL                          /00139501/ [Concomitant]
     Dosage: 17 MG, PRN
  6. HYDROCODONE BITARTRATE AND ACETAMINOPHEN [Concomitant]
     Dosage: TID PRN
  7. CELEBREX [Concomitant]
     Dosage: 200 MG, BID
  8. PREDNISONE [Concomitant]
     Dosage: 5 MG, BID
  9. FOSAMAX [Concomitant]
     Dosage: 70 MG, Q WEEK
  10. PROTONIX                           /01263201/ [Concomitant]
     Dosage: 40 MG, QD
  11. CARTIA                             /00002701/ [Concomitant]
     Indication: BLOOD PRESSURE
     Dosage: 120 MG, QD
     Dates: start: 20061121
  12. CARTIA                             /00002701/ [Concomitant]
     Indication: CARDIAC DISORDER
  13. ZETIA [Concomitant]
     Indication: BLOOD CHOLESTEROL
     Dosage: 10 MG, QD
     Dates: start: 20040715
  14. XALATAN [Concomitant]
     Indication: GLAUCOMA
     Dosage: 1 GTT OU AT HS
     Route: 047
     Dates: start: 20030625
  15. TIMOLOL MALEATE [Concomitant]
     Indication: GLAUCOMA
     Dosage: 1 GTT OS DAILY
     Route: 047
     Dates: start: 20040729
  16. CRESTOR [Concomitant]
     Dosage: 10 MG, QHS
     Dates: start: 20050211, end: 20061129
  17. CRESTOR [Concomitant]
     Dosage: 20 MG, UNK
     Dates: start: 20061129
  18. LUPRON [Concomitant]
     Dosage: EVERY 3 MONTHS

REACTIONS (2)
  - RASH [None]
  - URTICARIA [None]
